FAERS Safety Report 18516244 (Version 1)
Quarter: 2020Q4

REPORT INFORMATION
  Report Type: Spontaneous
  Country: US (occurrence: US)
  Receive Date: 20201118
  Receipt Date: 20201118
  Transmission Date: 20210114
  Serious: No
  Sender: FDA-Public Use
  Company Number: US-BAYER-2020-249870

PATIENT
  Age: 68 Year
  Sex: Male

DRUGS (3)
  1. ALEVE BACK AND MUSCLE PAIN [Concomitant]
     Active Substance: NAPROXEN SODIUM
  2. ALEVE [Suspect]
     Active Substance: NAPROXEN SODIUM
     Indication: PAIN
     Dosage: 1 DF
     Route: 048
     Dates: start: 202009
  3. ZOLOFT [Concomitant]
     Active Substance: SERTRALINE HYDROCHLORIDE

REACTIONS (2)
  - Expired product administered [Unknown]
  - Drug ineffective [None]

NARRATIVE: CASE EVENT DATE: 202009
